FAERS Safety Report 5267606-1 (Version None)
Quarter: 2007Q1

REPORT INFORMATION
  Report Type: 
  Country: None (occurrence: None)
  Receive Date: 20070316
  Receipt Date: 20070308
  Transmission Date: 20070707
  Serious: Yes (Hospitalization)
  Sender: FDA-Public Use
  Company Number: DE-ABBOTT-07P-062-0355874-00

PATIENT
  Sex: Male
  Weight: 3.24 kg

DRUGS (1)
  1. ERGENYL [Suspect]
     Indication: DRUG EXPOSURE DURING PREGNANCY

REACTIONS (10)
  - APGAR SCORE LOW [None]
  - BLOOD PH DECREASED [None]
  - CONVULSION NEONATAL [None]
  - CYANOSIS [None]
  - DERMATITIS DIAPER [None]
  - HYPOREFLEXIA [None]
  - HYPOTONIA [None]
  - POOR SUCKING REFLEX [None]
  - RESPIRATORY FAILURE [None]
  - TALIPES [None]
